FAERS Safety Report 23075602 (Version 1)
Quarter: 2023Q4

REPORT INFORMATION
  Report Type: Spontaneous
  Country: US (occurrence: None)
  Receive Date: 20231017
  Receipt Date: 20231017
  Transmission Date: 20240110
  Serious: Yes (Hospitalization)
  Sender: FDA-Public Use
  Company Number: None

PATIENT
  Age: 52 Year
  Sex: Female

DRUGS (1)
  1. CAPECITABINE [Suspect]
     Active Substance: CAPECITABINE
     Dosage: OTHER FREQUENCY : BID FOR 14;?

REACTIONS (7)
  - Therapy interrupted [None]
  - Back pain [None]
  - Diarrhoea [None]
  - Vomiting [None]
  - Muscle spasms [None]
  - Insomnia [None]
  - Palmar-plantar erythrodysaesthesia syndrome [None]
